FAERS Safety Report 4480116-4 (Version None)
Quarter: 2004Q4

REPORT INFORMATION
  Report Type: 
  Country: None (occurrence: None)
  Receive Date: 20041018
  Receipt Date: 20041005
  Transmission Date: 20050328
  Serious: Yes (Hospitalization, Other)
  Sender: FDA-Public Use
  Company Number: 049-0719-M0100021

PATIENT
  Age: 46 Year
  Sex: Male

DRUGS (8)
  1. GEMFIBROZIL [Suspect]
     Indication: ILL-DEFINED DISORDER
     Dosage: 3600 MG (1 IN 1 D), ORAL
     Route: 048
  2. CERIVASTATIN SODIUM (CERIVASTATIN SODIUM) [Suspect]
     Indication: HYPERLIPIDAEMIA
     Dosage: 0.3 MG (1 IN 1 D), ORAL
     Route: 048
  3. FENOFIBRATE [Suspect]
     Indication: ILL-DEFINED DISORDER
  4. MIBEFRADIL HYDROCHLORIDE (MIBEFRADIL HYDROCHLORIDE) [Concomitant]
  5. RAMIPRIL [Concomitant]
  6. ALLOPURINOL [Concomitant]
  7. ETOFYLLINE CLOFIBRATE (ETOFYLLINE CLOFIBRATE) [Concomitant]
  8. ATORVASTATIN (ATORVASTATIN) [Concomitant]

REACTIONS (19)
  - CONDITION AGGRAVATED [None]
  - DEPRESSION [None]
  - DIARRHOEA HAEMORRHAGIC [None]
  - ERYSIPELAS [None]
  - HEPATITIS A [None]
  - IMPAIRED WORK ABILITY [None]
  - INFECTION [None]
  - LYMPHADENOPATHY [None]
  - MOBILITY DECREASED [None]
  - MYASTHENIC SYNDROME [None]
  - NARCISSISTIC PERSONALITY DISORDER [None]
  - PARALYSIS [None]
  - POLYMYOSITIS [None]
  - POST-TRAUMATIC STRESS DISORDER [None]
  - PSYCHOSOMATIC DISEASE [None]
  - RHABDOMYOLYSIS [None]
  - SLEEP DISORDER [None]
  - SPINAL DISORDER [None]
  - TINNITUS [None]
